FAERS Safety Report 7387199-2 (Version None)
Quarter: 2011Q1

REPORT INFORMATION
  Report Type: 
  Country: None (occurrence: None)
  Receive Date: 20110331
  Receipt Date: 20110314
  Transmission Date: 20110831
  Serious: Yes (Hospitalization)
  Sender: FDA-Public Use
  Company Number: B0709360A

PATIENT
  Sex: Male

DRUGS (2)
  1. ZOMIG [Concomitant]
     Dates: start: 20100701
  2. AMERGE [Suspect]
     Indication: MIGRAINE
     Route: 048
     Dates: start: 20110314, end: 20110314

REACTIONS (4)
  - VOMITING [None]
  - DELIRIUM [None]
  - ENCEPHALOPATHY [None]
  - CRYING [None]
